FAERS Safety Report 9470306 (Version 1)
Quarter: 2013Q3

REPORT INFORMATION
  Report Type: Spontaneous
  Country: US (occurrence: US)
  Receive Date: 20130822
  Receipt Date: 20130822
  Transmission Date: 20140515
  Serious: No
  Sender: FDA-Public Use
  Company Number: US-SANOFI-AVENTIS-2012SA068808

PATIENT
  Age: 61 Year
  Sex: Female

DRUGS (5)
  1. MULTAQ [Suspect]
     Indication: ATRIAL FIBRILLATION
     Route: 048
     Dates: start: 20120917
  2. VITAMINS [Concomitant]
  3. LUTEIN [Concomitant]
  4. HERBAL PREPARATION [Concomitant]
  5. ASPIRIN [Concomitant]

REACTIONS (2)
  - Feeling abnormal [Unknown]
  - Fatigue [Unknown]
